FAERS Safety Report 9031669 (Version 52)
Quarter: 2022Q4

REPORT INFORMATION
  Report Type: Report from Study
  Country: CA (occurrence: CA)
  Receive Date: 20130124
  Receipt Date: 20221031
  Transmission Date: 20230113
  Serious: Yes (Hospitalization, Other)
  Sender: FDA-Public Use
  Company Number: PHHY2013CA006000

PATIENT
  Sex: Male

DRUGS (3)
  1. SANDOSTATIN LAR DEPOT [Suspect]
     Active Substance: OCTREOTIDE ACETATE
     Indication: Small intestine carcinoma
     Dosage: 30 MG, QMO
     Route: 030
     Dates: start: 20090812
  2. SANDOSTATIN LAR DEPOT [Suspect]
     Active Substance: OCTREOTIDE ACETATE
     Indication: Carcinoid tumour
     Dosage: 30 MG, Q4W
     Route: 030
     Dates: start: 20090812
  3. SANDOSTATIN LAR DEPOT [Suspect]
     Active Substance: OCTREOTIDE ACETATE
     Dosage: 30 MG, QMO
     Route: 030
     Dates: start: 20100814

REACTIONS (47)
  - Biliary colic [Unknown]
  - Fall [Unknown]
  - Fibula fracture [Unknown]
  - Metastases to liver [Unknown]
  - Intestinal metastasis [Unknown]
  - Metastases to lymph nodes [Unknown]
  - Metastases to stomach [Unknown]
  - Blood pressure increased [Unknown]
  - Malignant neoplasm progression [Unknown]
  - Heart rate decreased [Unknown]
  - Perineal abscess [Unknown]
  - Carcinoid tumour [Unknown]
  - Dementia [Unknown]
  - Confusional state [Unknown]
  - Nasopharyngitis [Unknown]
  - Oropharyngeal pain [Unknown]
  - Rhinorrhoea [Unknown]
  - Chills [Recovered/Resolved]
  - Back pain [Unknown]
  - Feeling abnormal [Unknown]
  - Influenza [Recovered/Resolved]
  - Malaise [Unknown]
  - Pain [Recovered/Resolved]
  - Lethargy [Unknown]
  - Muscle spasms [Unknown]
  - Cough [Unknown]
  - Memory impairment [Unknown]
  - Blood pressure diastolic increased [Unknown]
  - Faeces discoloured [Unknown]
  - Asthenia [Unknown]
  - Abdominal pain upper [Unknown]
  - Dizziness [Unknown]
  - Diarrhoea [Recovered/Resolved]
  - Vomiting [Recovered/Resolved]
  - Diarrhoea [Unknown]
  - Flatulence [Unknown]
  - Nausea [Unknown]
  - Pallor [Unknown]
  - Hyperhidrosis [Unknown]
  - Dyspnoea [Unknown]
  - Chest pain [Unknown]
  - Presyncope [Unknown]
  - Hypotension [Unknown]
  - Cognitive disorder [Unknown]
  - Libido disorder [Unknown]
  - Product use in unapproved indication [Unknown]
  - Drug ineffective [Unknown]

NARRATIVE: CASE EVENT DATE: 20090101
